FAERS Safety Report 7489478-7 (Version None)
Quarter: 2011Q2

REPORT INFORMATION
  Report Type: 
  Country: None (occurrence: None)
  Receive Date: 20110518
  Receipt Date: 20110509
  Transmission Date: 20111010
  Serious: Yes (Hospitalization)
  Sender: FDA-Public Use
  Company Number: US-AMGEN-USACT2011007201

PATIENT
  Age: 66 Year
  Sex: Female

DRUGS (8)
  1. FILGRASTIM [Suspect]
     Dosage: UNK
     Dates: start: 20100819
  2. PROMETHAZINE [Concomitant]
  3. DOXORUBICIN HCL [Concomitant]
     Indication: BREAST CANCER
     Dosage: 60 MG/KG, UNK
     Route: 042
     Dates: start: 20100818, end: 20101020
  4. ONDANSETRON HYDROCHLORIDE [Concomitant]
  5. PEGFILGRASTIM [Suspect]
     Dosage: 6 MG/KG, UNK
     Route: 058
     Dates: start: 20100819, end: 20101020
  6. PACLITAXEL [Concomitant]
     Indication: BREAST CANCER
     Dosage: 80 MG/M2, UNK
     Route: 042
     Dates: start: 20100818
  7. CYCLOPHOSPHAMIDE [Concomitant]
     Indication: BREAST CANCER
     Dosage: 600 MG/M2, UNK
     Route: 042
     Dates: start: 20100818, end: 20101020
  8. BEVACIZUMAB [Concomitant]
     Dosage: UNK UNK, BLINDED
     Dates: start: 20100818, end: 20101203

REACTIONS (2)
  - PNEUMONITIS [None]
  - LUNG INFILTRATION [None]
